FAERS Safety Report 24643944 (Version 1)
Quarter: 2024Q4

REPORT INFORMATION
  Report Type: Spontaneous
  Country: US (occurrence: US)
  Receive Date: 20241120
  Receipt Date: 20241120
  Transmission Date: 20250114
  Serious: No
  Sender: GE HEALTHCARE
  Company Number: US-GE HEALTHCARE-2024CSU010173

PATIENT
  Sex: Male

DRUGS (1)
  1. DATSCAN [Suspect]
     Active Substance: IODINE\IOFLUPANE I-123
     Indication: Diagnostic procedure
     Dosage: UNK, TOTAL
     Route: 042
     Dates: start: 20240829, end: 20240829

REACTIONS (2)
  - Injection site pain [Recovered/Resolved]
  - Scan abnormal [Recovered/Resolved]

NARRATIVE: CASE EVENT DATE: 20240829
